FAERS Safety Report 8234429-0 (Version None)
Quarter: 2012Q1

REPORT INFORMATION
  Report Type: 
  Country: None (occurrence: None)
  Receive Date: 20120326
  Receipt Date: 20120315
  Transmission Date: 20120608
  Serious: Yes (Hospitalization, Other)
  Sender: FDA-Public Use
  Company Number: GB-TEVA-329628ISR

PATIENT
  Age: 64 Year
  Sex: Male

DRUGS (5)
  1. REMICADE [Suspect]
     Indication: CROHN'S DISEASE
     Route: 042
     Dates: start: 20100401
  2. REMICADE [Suspect]
     Route: 042
     Dates: start: 20120101
  3. VITAMIN B-12 [Concomitant]
     Route: 050
  4. FOLIC ACID [Concomitant]
  5. METHOTREXATE [Suspect]
     Indication: PRODUCT USED FOR UNKNOWN INDICATION

REACTIONS (2)
  - HYPERPARATHYROIDISM PRIMARY [None]
  - MONOCLONAL GAMMOPATHY [None]
